FAERS Safety Report 24451267 (Version 1)
Quarter: 2024Q4

REPORT INFORMATION
  Report Type: Spontaneous
  Country: GB (occurrence: GB)
  Receive Date: 20241017
  Receipt Date: 20241017
  Transmission Date: 20250114
  Serious: Yes (Hospitalization, Other)
  Sender: SANOFI AVENTIS
  Company Number: GB-MHRA-MIDB-1e916302-aecd-478f-a126-27fa8a75d200

PATIENT
  Age: 88 Year
  Sex: Male

DRUGS (2)
  1. SEVELAMER CARBONATE [Suspect]
     Active Substance: SEVELAMER CARBONATE
     Indication: Chronic kidney disease
     Dosage: 800 MG, Q12H
     Route: 048
     Dates: end: 20240607
  2. SEVELAMER CARBONATE [Suspect]
     Active Substance: SEVELAMER CARBONATE
     Indication: Renal impairment

REACTIONS (9)
  - Gastritis [Recovered/Resolved]
  - Haematemesis [Recovered/Resolved]
  - Vomiting [Recovered/Resolved]
  - Nausea [Recovered/Resolved]
  - Tachycardia [Unknown]
  - Confusional state [Unknown]
  - Tachypnoea [Unknown]
  - Malaise [Unknown]
  - Pyrexia [Unknown]

NARRATIVE: CASE EVENT DATE: 20240606
